FAERS Safety Report 9457373 (Version 1)
Quarter: 2013Q3

REPORT INFORMATION
  Report Type: Spontaneous
  Country: IN (occurrence: None)
  Receive Date: 20130812
  Receipt Date: 20130812
  Transmission Date: 20140515
  Serious: Yes (Hospitalization)
  Sender: FDA-Public Use
  Company Number: PNIS20130005

PATIENT
  Age: 9 Year
  Sex: Male

DRUGS (5)
  1. PREDNISOLONE [Suspect]
     Route: 048
  2. ASPARGINASE [Suspect]
     Indication: CHEMOTHERAPY
     Dosage: 8 DOSES 2 IN 1 WEEK
  3. VINCRISTINE (VINCRISTINE) (UNKNOWN) (VINCRISTINE) [Concomitant]
  4. DAUNORUBICIN (DAUNORUBICIN) (UNKNOWN) (DAUNORUBUCIN) [Concomitant]
  5. METHOTREXATE (METHOTREXATE) (UNKNOWN) (METHOTREXATE) [Concomitant]

REACTIONS (7)
  - Diarrhoea [None]
  - Convulsion [None]
  - Cerebral haemorrhage [None]
  - Thrombocytopenia [None]
  - Coagulopathy [None]
  - Blood fibrinogen decreased [None]
  - Superior sagittal sinus thrombosis [None]
